FAERS Safety Report 6131243-7 (Version None)
Quarter: 2009Q1

REPORT INFORMATION
  Report Type: 
  Country: None (occurrence: None)
  Receive Date: 20090325
  Receipt Date: 20080222
  Transmission Date: 20090719
  Serious: Yes (Life-Threatening, Hospitalization)
  Sender: FDA-Public Use
  Company Number: US-BRISTOL-MYERS SQUIBB COMPANY-14062673

PATIENT
  Age: 83 Year
  Sex: Male

DRUGS (4)
  1. ERBITUX [Suspect]
     Indication: COLON CANCER
     Route: 042
     Dates: start: 20080130
  2. OXALIPLATIN [Concomitant]
     Dates: start: 20080128
  3. FLUOROURACIL [Concomitant]
     Dates: start: 20080128
  4. FOLINIC ACID [Concomitant]
     Dates: start: 20080128

REACTIONS (4)
  - FEELING ABNORMAL [None]
  - HYPOTENSION [None]
  - PALLOR [None]
  - PULSE PRESSURE DECREASED [None]
